FAERS Safety Report 25713597 (Version 1)
Quarter: 2025Q3

REPORT INFORMATION
  Report Type: Spontaneous
  Country: EU (occurrence: EU)
  Receive Date: 20250822
  Receipt Date: 20250822
  Transmission Date: 20251020
  Serious: Yes (Other)
  Sender: Unknown Manufacturer
  Company Number: EU-CORZA MEDICAL GMBH-2025-PT-002312

PATIENT
  Sex: Male

DRUGS (3)
  1. TACHOSIL [Suspect]
     Active Substance: FIBRINOGEN HUMAN\HUMAN THROMBIN
     Indication: Peyronie^s disease
     Route: 065
  2. CEFAZOLIN [Concomitant]
     Active Substance: CEFAZOLIN
     Indication: Prophylaxis
     Route: 065
  3. CAVERJECT [Concomitant]
     Active Substance: ALPROSTADIL
     Indication: Erectile dysfunction
     Route: 017

REACTIONS (2)
  - Erectile dysfunction [Unknown]
  - Off label use [Unknown]
